FAERS Safety Report 4290894-5 (Version None)
Quarter: 2004Q1

REPORT INFORMATION
  Report Type: 
  Country: None (occurrence: None)
  Receive Date: 20040211
  Receipt Date: 20031013
  Transmission Date: 20041129
  Serious: No
  Sender: FDA-Public Use
  Company Number: US-GLAXOSMITHKLINE-A0429975A

PATIENT
  Age: 81 Year
  Sex: Female

DRUGS (5)
  1. PAXIL [Suspect]
     Indication: DEPRESSION
     Dosage: 20MG PER DAY
     Route: 048
  2. COUMADIN [Concomitant]
  3. LANOXIN [Concomitant]
  4. MULTI-VITAMIN [Concomitant]
  5. THEOPHYLLINE [Concomitant]

REACTIONS (2)
  - BALANCE DISORDER [None]
  - PAIN IN EXTREMITY [None]
